FAERS Safety Report 8419465-3 (Version None)
Quarter: 2012Q2

REPORT INFORMATION
  Report Type: 
  Country: None (occurrence: None)
  Receive Date: 20120607
  Receipt Date: 20120524
  Transmission Date: 20120825
  Serious: Yes (Other)
  Sender: FDA-Public Use
  Company Number: DE-TEVA-257390ISR

PATIENT
  Sex: Female

DRUGS (13)
  1. CORTISONE ACETATE [Concomitant]
     Dates: start: 20071001
  2. AVELOX [Concomitant]
     Dosage: 400 MILLIGRAM;
     Dates: start: 20050114, end: 20050120
  3. CORTISONE ACETATE [Concomitant]
     Dates: start: 20071004
  4. METOPROLOL TARTRATE AND HYDROCHLOROTHIAZIDE [Concomitant]
     Dates: start: 20040101, end: 20060101
  5. CORTISONE ACETATE [Concomitant]
     Dates: start: 20071002
  6. PREDNISONE [Concomitant]
     Indication: MULTIPLE SCLEROSIS
     Dosage: 1000 MILLIGRAM;
     Route: 042
     Dates: start: 20010101
  7. INFLUENZA VIRUS VACCINE [Concomitant]
     Dates: start: 20051020
  8. CORTISONE ACETATE [Concomitant]
     Dates: start: 20040401
  9. INFLUENZA VIRUS VACCINE [Concomitant]
     Dates: start: 20071011
  10. COPAXONE [Suspect]
     Indication: MULTIPLE SCLEROSIS
     Dosage: 20 MILLIGRAM;
     Route: 058
     Dates: start: 20040101, end: 20080713
  11. METOPROLOL TARTRATE [Concomitant]
     Dates: start: 20070313
  12. OMEPRAZOLE [Concomitant]
     Dates: start: 20080704
  13. OMEBETA [Concomitant]
     Dates: start: 20081201

REACTIONS (2)
  - REFRACTORY ANAEMIA WITH AN EXCESS OF BLASTS [None]
  - NEOPLASM PROGRESSION [None]
